FAERS Safety Report 9796329 (Version 1)
Quarter: 2014Q1

REPORT INFORMATION
  Report Type: Spontaneous
  Country: US (occurrence: US)
  Receive Date: 20140103
  Receipt Date: 20140103
  Transmission Date: 20141002
  Serious: Yes (Hospitalization)
  Sender: FDA-Public Use
  Company Number: US-MALLINCKRODT-T201305015

PATIENT
  Age: 55 Year
  Sex: Female
  Weight: 76.64 kg

DRUGS (21)
  1. EXALGO [Suspect]
     Indication: PAIN
     Dosage: THREE 16 MG, TABLETS (48 MG), QD
     Route: 048
     Dates: start: 201310
  2. COLACE [Concomitant]
     Dosage: UNK
     Route: 065
  3. SYNTHROID [Concomitant]
     Dosage: UNK
     Route: 065
  4. CYMBALTA [Concomitant]
     Dosage: UNK
     Route: 065
  5. POTASSIUM [Concomitant]
     Dosage: UNK
     Route: 065
  6. MAGNESIUM [Concomitant]
     Dosage: UNK
     Route: 065
  7. LANTUS [Concomitant]
     Dosage: UNK
     Route: 065
  8. LASIX                              /00032601/ [Concomitant]
     Dosage: UNK
     Route: 065
  9. NOVOLIN [Concomitant]
     Dosage: UNK
     Route: 065
  10. XANAX [Concomitant]
     Dosage: UNK
     Route: 065
  11. CLEOCIN                            /00166002/ [Concomitant]
     Dosage: UNK
     Route: 065
  12. POLYETHYLENE GLYCOL [Concomitant]
     Dosage: UNK
     Route: 065
  13. LOPRESSOR [Concomitant]
     Dosage: UNK
     Route: 065
  14. VICTOZA [Concomitant]
     Dosage: UNK
     Route: 065
  15. PLAVIX [Concomitant]
     Dosage: UNK
     Route: 065
  16. IMMUNOGLOBULIN I.V [Concomitant]
     Dosage: UNK
     Route: 065
  17. KEPPRA [Concomitant]
     Dosage: UNK
     Route: 065
  18. PRILOSEC                           /00661201/ [Concomitant]
     Dosage: UNK
     Route: 065
  19. SIMVASTATIN [Concomitant]
     Dosage: UNK
     Route: 065
  20. RELISTOR [Concomitant]
     Dosage: UNK
     Route: 065
  21. AMOXICILLIN [Concomitant]
     Dosage: UNK
     Route: 065

REACTIONS (2)
  - Loss of consciousness [Unknown]
  - Drug level increased [Unknown]
